FAERS Safety Report 5059711-X (Version None)
Quarter: 2006Q3

REPORT INFORMATION
  Report Type: 
  Country: None (occurrence: None)
  Receive Date: 20060724
  Receipt Date: 20060713
  Transmission Date: 20061208
  Serious: Yes (Hospitalization)
  Sender: FDA-Public Use
  Company Number: US-ROCHE-455573

PATIENT
  Age: 52 Year
  Sex: Female

DRUGS (4)
  1. PEGASYS [Suspect]
     Route: 065
     Dates: end: 20050615
  2. PEGASYS [Suspect]
     Route: 065
     Dates: start: 20060616
  3. COPEGUS [Suspect]
     Route: 065
     Dates: end: 20050615
  4. COPEGUS [Suspect]
     Route: 065
     Dates: start: 20060616

REACTIONS (4)
  - APPENDICITIS [None]
  - BACK PAIN [None]
  - IRRITABILITY [None]
  - MOOD SWINGS [None]
